FAERS Safety Report 14837867 (Version 4)
Quarter: 2018Q3

REPORT INFORMATION
  Report Type: Spontaneous
  Country: JP (occurrence: JP)
  Receive Date: 20180502
  Receipt Date: 20180711
  Transmission Date: 20181010
  Serious: Yes (Hospitalization)
  Sender: FDA-Public Use
  Company Number: JP-ASTRAZENECA-2018SE21675

PATIENT
  Age: 8591 Day
  Sex: Male
  Weight: 105 kg

DRUGS (10)
  1. SPIRIVA [Concomitant]
     Active Substance: TIOTROPIUM BROMIDE MONOHYDRATE
     Indication: ASTHMA
     Dosage: 2.0DF UNKNOWN
     Route: 055
     Dates: start: 20180301
  2. PREDNISONE. [Concomitant]
     Active Substance: PREDNISONE
     Indication: ASTHMA
     Route: 048
     Dates: start: 20180301, end: 201803
  3. ONON [Concomitant]
     Active Substance: PRANLUKAST
     Indication: ASTHMA
     Route: 048
     Dates: start: 20180123
  4. HOKUNALIN:TAPE [Concomitant]
     Active Substance: TULOBUTEROL
     Route: 062
  5. SYMBICORT [Suspect]
     Active Substance: BUDESONIDE\FORMOTEROL FUMARATE DIHYDRATE
     Indication: ASTHMA
     Dosage: FOUR INHALATIONS FOUR TIMES DAILY
     Route: 055
     Dates: start: 201711, end: 201802
  6. REBAMIPIDE [Concomitant]
     Active Substance: REBAMIPIDE
     Indication: ASTHMA
     Route: 048
  7. SYMBICORT [Suspect]
     Active Substance: BUDESONIDE\FORMOTEROL FUMARATE DIHYDRATE
     Indication: ASTHMA
     Dosage: TWO INHALATIONS FOUR TIMES DAILY
     Route: 055
     Dates: start: 20180123, end: 20180312
  8. MUCOSOLVAN [Concomitant]
     Active Substance: AMBROXOL HYDROCHLORIDE
     Indication: ASTHMA
     Route: 048
     Dates: start: 20180123
  9. SPIRIVA [Concomitant]
     Active Substance: TIOTROPIUM BROMIDE MONOHYDRATE
     Indication: ASTHMA
     Dosage: 2.0DF UNKNOWN
     Route: 055
     Dates: start: 20180123
  10. SYMBICORT [Suspect]
     Active Substance: BUDESONIDE\FORMOTEROL FUMARATE DIHYDRATE
     Indication: ASTHMA
     Dosage: FOUR INHALATIONS FOUR TIMES DAILY
     Route: 055
     Dates: start: 20171025, end: 20171028

REACTIONS (6)
  - Status asthmaticus [Recovering/Resolving]
  - Mouth ulceration [Recovering/Resolving]
  - Palpitations [Recovering/Resolving]
  - Tongue ulceration [Recovered/Resolved]
  - Overdose [Unknown]
  - Tachycardia [Recovering/Resolving]

NARRATIVE: CASE EVENT DATE: 20171027
